FAERS Safety Report 7029373-0 (Version None)
Quarter: 2010Q4

REPORT INFORMATION
  Report Type: 
  Country: None (occurrence: None)
  Receive Date: 20101005
  Receipt Date: 20100927
  Transmission Date: 20110411
  Serious: Yes (Other)
  Sender: FDA-Public Use
  Company Number: PHHY2010FR64745

PATIENT
  Age: 71 Year
  Sex: Female
  Weight: 48 kg

DRUGS (8)
  1. MIACALCIN [Suspect]
     Dosage: 50 IU/1 ML
     Route: 058
     Dates: start: 20100911
  2. KARDEGIC [Concomitant]
     Dosage: 160 MG, UNK
  3. CARTREX [Concomitant]
  4. LEVOTHYROXINE SODIUM [Concomitant]
  5. TANGANIL [Concomitant]
  6. LECTIL [Concomitant]
  7. ART 50 [Concomitant]
  8. INIPOMP [Concomitant]

REACTIONS (5)
  - DIARRHOEA [None]
  - FALL [None]
  - LOSS OF CONSCIOUSNESS [None]
  - MALAISE [None]
  - POLYURIA [None]
